FAERS Safety Report 9096917 (Version 1)
Quarter: 2013Q1

REPORT INFORMATION
  Report Type: Spontaneous
  Country: US (occurrence: US)
  Receive Date: 20130211
  Receipt Date: 20130211
  Transmission Date: 20140127
  Serious: Yes (Hospitalization, Other)
  Sender: FDA-Public Use
  Company Number: US-AMGEN-USASP2013007244

PATIENT
  Age: 31 Year
  Sex: Female

DRUGS (6)
  1. ENBREL [Suspect]
     Indication: RHEUMATOID ARTHRITIS
     Dosage: 50 MG, QWK
     Dates: start: 20030701
  2. METHOTREXATE [Concomitant]
     Dosage: UNK
     Dates: start: 201108, end: 2011
  3. NEURONTIN [Concomitant]
  4. LITHIUM [Concomitant]
     Dosage: UNK
  5. LEXAPRO [Concomitant]
  6. VALIUM                             /00017001/ [Concomitant]

REACTIONS (23)
  - Arthralgia [Recovered/Resolved]
  - Mobility decreased [Recovered/Resolved]
  - Abasia [Unknown]
  - Inflammation [Recovered/Resolved]
  - Swelling [Recovered/Resolved]
  - Abortion spontaneous [Recovered/Resolved]
  - Drug dependence [Unknown]
  - Drug withdrawal convulsions [Unknown]
  - Lupus-like syndrome [Not Recovered/Not Resolved]
  - Urticaria [Not Recovered/Not Resolved]
  - Skin burning sensation [Not Recovered/Not Resolved]
  - Vomiting [Not Recovered/Not Resolved]
  - Diarrhoea [Not Recovered/Not Resolved]
  - Decreased appetite [Not Recovered/Not Resolved]
  - Weight decreased [Not Recovered/Not Resolved]
  - Chills [Not Recovered/Not Resolved]
  - Pyrexia [Not Recovered/Not Resolved]
  - Gout [Not Recovered/Not Resolved]
  - Hypoaesthesia [Unknown]
  - Muscle twitching [Unknown]
  - Local swelling [Recovered/Resolved]
  - Arthritis [Recovered/Resolved]
  - Bipolar disorder [Not Recovered/Not Resolved]
